FAERS Safety Report 8249709-2 (Version None)
Quarter: 2012Q2

REPORT INFORMATION
  Report Type: 
  Country: None (occurrence: None)
  Receive Date: 20120402
  Receipt Date: 20120326
  Transmission Date: 20120825
  Serious: Yes (Other)
  Sender: FDA-Public Use
  Company Number: DE-BRISTOL-MYERS SQUIBB COMPANY-16291122

PATIENT
  Age: 26 Year
  Sex: Male

DRUGS (2)
  1. ABILIFY [Suspect]
     Indication: SCHIZOPHRENIA, PARANOID TYPE
     Dosage: 1DF:25 UNIT NOS. DOSE REDUCED TO 20MG THEN TO 7.5MG
     Route: 048
     Dates: start: 20110606
  2. LORAZEPAM [Concomitant]
     Indication: RESTLESSNESS

REACTIONS (3)
  - MOBILITY DECREASED [None]
  - GAIT DISTURBANCE [None]
  - CHILLS [None]
